FAERS Safety Report 9541511 (Version 1)
Quarter: 2013Q4

REPORT INFORMATION
  Report Type: Spontaneous
  Country: US (occurrence: None)
  Receive Date: 20130919
  Receipt Date: 20130919
  Transmission Date: 20140711
  Serious: Yes (Life-Threatening, Hospitalization)
  Sender: FDA-Public Use
  Company Number: None

PATIENT
  Age: 61 Year
  Sex: Female
  Weight: 92.5 kg

DRUGS (4)
  1. VANCOMYCIN HYDROCHLORIDE FOR INJECTION, USP 500MG AAP PHARMACEUTICALS, LLC SCHAUMBURG, IL 60173 [Suspect]
     Indication: CELLULITIS
     Dosage: 1GRAM  IV  X1  DOSE
     Route: 042
     Dates: start: 20130829
  2. ZEMPLAR [Concomitant]
  3. HEPARIN [Concomitant]
  4. SIGMA 8000 PLUS [Concomitant]

REACTIONS (3)
  - Unresponsive to stimuli [None]
  - Blood pressure decreased [None]
  - Heart rate increased [None]
